FAERS Safety Report 18050082 (Version 3)
Quarter: 2020Q3

REPORT INFORMATION
  Report Type: Report from Study
  Country: US (occurrence: US)
  Receive Date: 20200721
  Receipt Date: 20200812
  Transmission Date: 20201103
  Serious: Yes (Hospitalization, Other)
  Sender: FDA-Public Use
  Company Number: US-GILEAD-2020-0484110

PATIENT
  Sex: Male

DRUGS (1)
  1. SOFOSBUVIR W/VELPATASVIR [Suspect]
     Active Substance: SOFOSBUVIR\VELPATASVIR
     Indication: CHRONIC HEPATITIS C
     Dosage: 1 DOSAGE FORM, QD
     Route: 048
     Dates: start: 202005

REACTIONS (8)
  - Varices oesophageal [Unknown]
  - Renal failure [Not Recovered/Not Resolved]
  - Terminal state [Not Recovered/Not Resolved]
  - Hepatic failure [Not Recovered/Not Resolved]
  - Hepatic encephalopathy [Unknown]
  - Septic shock [Not Recovered/Not Resolved]
  - Weight decreased [Unknown]
  - Abdominal cavity drainage [Unknown]
